FAERS Safety Report 23507849 (Version 1)
Quarter: 2024Q1

REPORT INFORMATION
  Report Type: Spontaneous
  Country: US (occurrence: None)
  Receive Date: 20240207
  Receipt Date: 20240207
  Transmission Date: 20240410
  Serious: Yes (Other)
  Sender: FDA-Public Use
  Company Number: None

PATIENT
  Sex: Female

DRUGS (1)
  1. COSMETICS [Suspect]
     Active Substance: COSMETICS
     Indication: Eye colour change
     Dosage: FREQUENCY : TWICE A DAY;?
     Route: 047

REACTIONS (3)
  - Drug ineffective [None]
  - Vision blurred [None]
  - Product advertising issue [None]

NARRATIVE: CASE EVENT DATE: 20240205
